FAERS Safety Report 23360682 (Version 10)
Quarter: 2024Q4

REPORT INFORMATION
  Report Type: Report from Study
  Country: BR (occurrence: BR)
  Receive Date: 20240103
  Receipt Date: 20241219
  Transmission Date: 20250115
  Serious: Yes (Other)
  Sender: JOHNSON AND JOHNSON
  Company Number: BR-JNJFOC-20231277627

PATIENT
  Age: 39 Year
  Sex: Female
  Weight: 70 kg

DRUGS (6)
  1. INFLIXIMAB [Suspect]
     Active Substance: INFLIXIMAB
     Indication: Crohn^s disease
     Route: 041
     Dates: start: 20090123
  2. INFLIXIMAB [Suspect]
     Active Substance: INFLIXIMAB
     Route: 041
     Dates: start: 20190814
  3. INFLIXIMAB [Suspect]
     Active Substance: INFLIXIMAB
     Dosage: LAST INFUSION ON 17-MAY-2024
     Route: 041
     Dates: start: 20190814
  4. INFLIXIMAB [Suspect]
     Active Substance: INFLIXIMAB
     Route: 041
     Dates: start: 20230901
  5. INFLIXIMAB [Suspect]
     Active Substance: INFLIXIMAB
     Route: 041
     Dates: start: 20190814
  6. INFLIXIMAB [Suspect]
     Active Substance: INFLIXIMAB
     Indication: Crohn^s disease
     Dosage: 4 AMPOULES?DILUTE TO 250ML OF 0.9% SALINE AND INFUSE OVER 2 HOURS, EQUIPPED WITH A FILTER.
     Route: 041
     Dates: start: 20190814

REACTIONS (3)
  - Fistula [Recovered/Resolved]
  - COVID-19 [Recovering/Resolving]
  - Off label use [Unknown]

NARRATIVE: CASE EVENT DATE: 20231125
